FAERS Safety Report 9966094 (Version 1)
Quarter: 2014Q1

REPORT INFORMATION
  Report Type: Report from Study
  Country: US (occurrence: US)
  Receive Date: 20140305
  Receipt Date: 20140305
  Transmission Date: 20141002
  Serious: No
  Sender: FDA-Public Use
  Company Number: US-ABBVIE-13P-163-1127629-00

PATIENT
  Age: 49 Year
  Sex: Female

DRUGS (11)
  1. HUMIRA [Suspect]
     Indication: RHEUMATOID ARTHRITIS
     Dates: start: 20130417
  2. METFORMIN [Concomitant]
     Indication: DIABETES MELLITUS
     Dosage: 750MG DAILY
  3. PROPRANOLOL [Concomitant]
     Indication: HYPERTENSION
     Dosage: 120MG DAILY
  4. PROPRANOLOL [Concomitant]
     Indication: PALPITATIONS
  5. PROPRANOLOL [Concomitant]
     Indication: TREMOR
  6. SINGULAIR [Concomitant]
     Indication: HYPERSENSITIVITY
     Dosage: 10MG DAILY
  7. SIMVASTATIN [Concomitant]
     Indication: BLOOD CHOLESTEROL INCREASED
     Dosage: 20MG DAILY
  8. LOSARTIN [Concomitant]
     Indication: HYPERTENSION
     Dosage: 50MG DAILY
  9. SULFASALAZINE [Concomitant]
     Indication: RHEUMATOID ARTHRITIS
  10. NAPROXEN [Concomitant]
     Indication: ARTHRALGIA
  11. ZYRTEC [Concomitant]
     Indication: HYPERSENSITIVITY
     Dosage: 10MG DAILY

REACTIONS (2)
  - Injection site pain [Not Recovered/Not Resolved]
  - Injection site pain [Not Recovered/Not Resolved]
